FAERS Safety Report 5515564-4 (Version None)
Quarter: 2007Q4

REPORT INFORMATION
  Report Type: 
  Country: None (occurrence: None)
  Receive Date: 20071113
  Receipt Date: 20070606
  Transmission Date: 20080405
  Serious: No
  Sender: FDA-Public Use
  Company Number: A0654419A

PATIENT
  Age: 84 Year
  Sex: Male

DRUGS (13)
  1. COREG [Suspect]
     Dosage: 6.25MG SINGLE DOSE
     Route: 048
     Dates: start: 20070401
  2. ATENOLOL [Concomitant]
  3. CRESTOR [Concomitant]
  4. DIOVAN [Concomitant]
  5. NEURONTIN [Concomitant]
  6. OMEPRAZOLE [Concomitant]
  7. ECOTRIN [Concomitant]
  8. TYLENOL [Concomitant]
  9. NITROGLYCERIN [Concomitant]
  10. LORAZEPAM [Concomitant]
  11. ANTIOXIDANT [Concomitant]
  12. GLUCOSAMINE [Concomitant]
  13. EYE DROPS [Concomitant]

REACTIONS (2)
  - DIZZINESS [None]
  - GAIT DISTURBANCE [None]
